FAERS Safety Report 12355647 (Version 1)
Quarter: 2016Q2

REPORT INFORMATION
  Report Type: Spontaneous
  Country: US (occurrence: US)
  Receive Date: 20160511
  Receipt Date: 20160511
  Transmission Date: 20160815
  Serious: Yes (Other)
  Sender: FDA-Public Use
  Company Number: US-JNJFOC-20160506780

PATIENT
  Age: 70 Year
  Sex: Male

DRUGS (1)
  1. INVOKANA [Suspect]
     Active Substance: CANAGLIFLOZIN
     Indication: TYPE 2 DIABETES MELLITUS
     Route: 048
     Dates: start: 201504, end: 201603

REACTIONS (3)
  - Sarcoma [Not Recovered/Not Resolved]
  - Inappropriate schedule of drug administration [Unknown]
  - Urine output increased [Unknown]

NARRATIVE: CASE EVENT DATE: 201603
